FAERS Safety Report 23862192 (Version 1)
Quarter: 2024Q2

REPORT INFORMATION
  Report Type: Spontaneous
  Country: US (occurrence: None)
  Receive Date: 20240515
  Receipt Date: 20240515
  Transmission Date: 20240716
  Serious: No
  Sender: FDA-Public Use
  Company Number: None

PATIENT
  Age: 59 Year
  Sex: Female

DRUGS (10)
  1. XDEMVY [Suspect]
     Active Substance: LOTILANER
     Indication: Demodex blepharitis
     Dosage: FREQUENCY : TWICE A DAY;?
     Route: 047
     Dates: start: 20240503, end: 20240513
  2. OPTASE (GLYCERIN) [Suspect]
     Active Substance: GLYCERIN
  3. TRYVAYA [Concomitant]
  4. ARIPIPRAZOLE [Concomitant]
     Active Substance: ARIPIPRAZOLE
  5. BUMETANIDE [Concomitant]
     Active Substance: BUMETANIDE
  6. CARVEDILOL [Concomitant]
     Active Substance: CARVEDILOL
  7. CLONAZEPAM [Concomitant]
     Active Substance: CLONAZEPAM
  8. ESCITALOPRAM [Concomitant]
     Active Substance: ESCITALOPRAM OXALATE
  9. OMEPRAZOLE [Concomitant]
     Active Substance: DONEPEZIL HYDROCHLORIDE\OMEPRAZOLE\OMEPRAZOLE MAGNESIUM
  10. TOPIRAMATE [Concomitant]
     Active Substance: TOPIRAMATE

REACTIONS (4)
  - Eye irritation [None]
  - Eye pain [None]
  - Photophobia [None]
  - Therapy interrupted [None]

NARRATIVE: CASE EVENT DATE: 20240510
